FAERS Safety Report 5158923-4 (Version None)
Quarter: 2006Q4

REPORT INFORMATION
  Report Type: 
  Country: None (occurrence: None)
  Receive Date: 20061117
  Receipt Date: 20061024
  Transmission Date: 20070319
  Serious: Yes (Death)
  Sender: FDA-Public Use
  Company Number: DSA_28908_2006

PATIENT
  Age: 38 Year
  Sex: 0

DRUGS (2)
  1. LORAZEPAM [Suspect]
     Dosage: DF PO
     Route: 048
  2. QUETIAPINE FUMARATE [Suspect]
     Dosage: DF PO
     Route: 048

REACTIONS (4)
  - CARDIAC ARREST [None]
  - COMPLETED SUICIDE [None]
  - POISONING [None]
  - RESPIRATORY ARREST [None]
